FAERS Safety Report 11768307 (Version 1)
Quarter: 2015Q4

REPORT INFORMATION
  Report Type: Spontaneous
  Country: US (occurrence: US)
  Receive Date: 20151123
  Receipt Date: 20151123
  Transmission Date: 20160304
  Serious: No
  Sender: FDA-Public Use
  Company Number: US-TEVA-578799USA

PATIENT
  Age: 47 Year
  Sex: Female

DRUGS (6)
  1. DEPAKOTE ER [Concomitant]
     Active Substance: DIVALPROEX SODIUM
  2. KLONOPIN [Concomitant]
     Active Substance: CLONAZEPAM
  3. TRILEPTAL [Concomitant]
     Active Substance: OXCARBAZEPINE
  4. STELAZINE [Concomitant]
     Active Substance: TRIFLUOPERAZINE HYDROCHLORIDE
  5. COGENTIN [Concomitant]
     Active Substance: BENZTROPINE MESYLATE
  6. CLOZAPINE. [Suspect]
     Active Substance: CLOZAPINE
     Route: 065

REACTIONS (3)
  - Adverse event [Unknown]
  - White blood cell count decreased [Recovered/Resolved]
  - Neutrophil count decreased [Unknown]

NARRATIVE: CASE EVENT DATE: 20150617
